FAERS Safety Report 21722530 (Version 1)
Quarter: 2022Q4

REPORT INFORMATION
  Report Type: Spontaneous
  Country: US (occurrence: None)
  Receive Date: 20221212
  Receipt Date: 20221212
  Transmission Date: 20230112
  Serious: No
  Sender: FDA-Public Use
  Company Number: None

PATIENT
  Sex: Female

DRUGS (1)
  1. FINGOLIMOD [Suspect]
     Active Substance: FINGOLIMOD
     Dosage: FREQUENCY : DAILY;?
     Route: 048
     Dates: start: 2012

REACTIONS (3)
  - Hypersensitivity [None]
  - Sinus headache [None]
  - Basal cell carcinoma [None]
